FAERS Safety Report 12578448 (Version 1)
Quarter: 2016Q3

REPORT INFORMATION
  Report Type: Spontaneous
  Country: US (occurrence: US)
  Receive Date: 20160721
  Receipt Date: 20160721
  Transmission Date: 20161109
  Serious: Yes (Other)
  Sender: FDA-Public Use
  Company Number: US-DRREDDYS-USA/USA/16/0081474

PATIENT
  Age: 16 Year
  Sex: Male

DRUGS (1)
  1. MINOCYCLINE [Suspect]
     Active Substance: MINOCYCLINE\MINOCYCLINE HYDROCHLORIDE
     Indication: ACNE
     Route: 048

REACTIONS (9)
  - Polydipsia [Recovered/Resolved]
  - Headache [Recovered/Resolved]
  - Hyperthyroidism [Recovered/Resolved]
  - Thyroiditis [Recovered/Resolved]
  - Weight decreased [Recovered/Resolved]
  - Fatigue [Recovered/Resolved]
  - Sleep disorder [Recovered/Resolved]
  - Diarrhoea [Recovered/Resolved]
  - Palpitations [Recovered/Resolved]
